FAERS Safety Report 10703267 (Version 6)
Quarter: 2015Q2

REPORT INFORMATION
  Report Type: Report from Study
  Country: JP (occurrence: JP)
  Receive Date: 20150112
  Receipt Date: 20150619
  Transmission Date: 20150821
  Serious: Yes (Hospitalization)
  Sender: FDA-Public Use
  Company Number: JP-ROCHE-1519367

PATIENT
  Age: 75 Year
  Sex: Male

DRUGS (9)
  1. BENDAMUSTINE HYDROCHLORIDE [Suspect]
     Active Substance: BENDAMUSTINE HYDROCHLORIDE
     Indication: B-CELL LYMPHOMA
     Dosage: MOST RECENT DOSE ON 11/DEC/2014
     Route: 042
     Dates: start: 20140806, end: 20141212
  2. SULFAMETHOXAZOLE/TRIMETHOPRIM [Concomitant]
     Active Substance: SULFAMETHOXAZOLE\TRIMETHOPRIM
     Indication: PROPHYLAXIS
     Route: 046
     Dates: start: 20141210
  3. BLINDED IBRUTINIB [Suspect]
     Active Substance: IBRUTINIB
     Indication: B-CELL LYMPHOMA
     Dosage: MOST RECENT DOSE ON 21/DEC/2014
     Route: 048
     Dates: start: 20140806
  4. ZOVIRAX [Concomitant]
     Active Substance: ACYCLOVIR
     Route: 048
     Dates: start: 20141210
  5. CALONAL [Concomitant]
     Active Substance: ACETAMINOPHEN
     Dosage: AS NEEDED
     Route: 048
     Dates: start: 20141222, end: 20150107
  6. NAUZELIN [Concomitant]
     Active Substance: DOMPERIDONE
     Dosage: AS NEEDED
     Route: 048
     Dates: start: 20141222, end: 20150107
  7. OZEX (JAPAN) [Concomitant]
     Active Substance: TOSUFLOXACIN TOSYLATE
     Route: 048
     Dates: start: 20141222, end: 20150107
  8. BIOFERMIN [Concomitant]
     Active Substance: BACILLUS SUBTILIS\LACTOBACILLUS ACIDOPHILUS\STREPTOCOCCUS FAECAIS
     Dosage: AS NEEDED
     Route: 048
     Dates: start: 20141222, end: 20150107
  9. RITUXIMAB [Suspect]
     Active Substance: RITUXIMAB
     Indication: B-CELL LYMPHOMA
     Dosage: MOST RECENT DOSE ON 11/DEC/2014
     Route: 042
     Dates: start: 20140806, end: 20141212

REACTIONS (2)
  - Cytomegalovirus infection [Recovering/Resolving]
  - Dehydration [Unknown]

NARRATIVE: CASE EVENT DATE: 20141229
